FAERS Safety Report 8167875-4 (Version None)
Quarter: 2012Q1

REPORT INFORMATION
  Report Type: 
  Country: None (occurrence: None)
  Receive Date: 20120227
  Receipt Date: 20120215
  Transmission Date: 20120608
  Serious: Yes (Other)
  Sender: FDA-Public Use
  Company Number: AU-ROCHE-693243

PATIENT
  Sex: Male
  Weight: 59.6 kg

DRUGS (4)
  1. CETIRIZINE [Concomitant]
  2. PREDNISONE [Concomitant]
     Dates: start: 20100220, end: 20100310
  3. VEMURAFENIB [Suspect]
     Indication: MALIGNANT MELANOMA
     Dosage: LAST DOSE PRIOR TO SAE : 13 MAY 2010
     Route: 048
  4. PERINDOPRIL [Concomitant]

REACTIONS (4)
  - KERATOACANTHOMA [None]
  - SQUAMOUS CELL CARCINOMA OF SKIN [None]
  - VIITH NERVE PARALYSIS [None]
  - SQUAMOUS CELL CARCINOMA [None]
